FAERS Safety Report 18591326 (Version 1)
Quarter: 2020Q4

REPORT INFORMATION
  Report Type: Spontaneous
  Country: US (occurrence: US)
  Receive Date: 20201208
  Receipt Date: 20201208
  Transmission Date: 20210114
  Serious: Yes (Hospitalization, Other)
  Sender: FDA-Public Use
  Company Number: US-009507513-2012USA003551

PATIENT
  Age: 65 Year
  Sex: Male

DRUGS (12)
  1. AVASTIN [Suspect]
     Active Substance: BEVACIZUMAB
     Dosage: Q 2 -WEEK, 4 OF 7 CYCLES
     Dates: start: 20190807, end: 20190807
  2. KEPPRA [Concomitant]
     Active Substance: LEVETIRACETAM
     Dosage: 1250 MILLIGRAM, Q AM
  3. TEMODAR [Suspect]
     Active Substance: TEMOZOLOMIDE
     Dosage: 150-200 MG/M2, EVERY 4 WEEKS
     Dates: start: 20190422, end: 20191113
  4. PRINIVIL [Concomitant]
     Active Substance: LISINOPRIL
     Indication: HYPERTENSION
  5. AVASTIN [Suspect]
     Active Substance: BEVACIZUMAB
     Dosage: Q 2 -WEEK, 4 OF 7 CYCLES
     Dates: start: 20190724, end: 20190724
  6. AVASTIN [Suspect]
     Active Substance: BEVACIZUMAB
     Dosage: Q 2 -WEEK, 4 OF 7 CYCLES
     Dates: start: 20190821, end: 20190821
  7. AVASTIN [Suspect]
     Active Substance: BEVACIZUMAB
     Dosage: Q 2 -WEEK, 4 OF 7 CYCLES
     Dates: start: 20190904, end: 20190917
  8. TEMODAR [Suspect]
     Active Substance: TEMOZOLOMIDE
     Dosage: UNK
     Dates: start: 20190204, end: 20190320
  9. KEPPRA [Concomitant]
     Active Substance: LEVETIRACETAM
     Dosage: 1500 MILLIGRAM, Q PM
  10. CYANOCOBALAMIN. [Concomitant]
     Active Substance: CYANOCOBALAMIN
     Route: 048
  11. DECADRON [Concomitant]
     Active Substance: DEXAMETHASONE
     Dosage: 2 MILLIGRAM, QD
  12. ULTRAM [Concomitant]
     Active Substance: TRAMADOL HYDROCHLORIDE
     Dosage: 50 MILLIGRAM, 2 TIMES A DAY

REACTIONS (2)
  - Posterior reversible encephalopathy syndrome [Unknown]
  - Malignant neoplasm progression [Unknown]

NARRATIVE: CASE EVENT DATE: 201909
